FAERS Safety Report 24790243 (Version 1)
Quarter: 2024Q4

REPORT INFORMATION
  Report Type: Spontaneous
  Country: US (occurrence: US)
  Receive Date: 20241230
  Receipt Date: 20241230
  Transmission Date: 20250115
  Serious: Yes (Hospitalization, Other)
  Sender: JOHNSON AND JOHNSON
  Company Number: US-JNJFOC-20241255726

PATIENT
  Age: 74 Year
  Sex: Female

DRUGS (3)
  1. VELETRI [Suspect]
     Active Substance: EPOPROSTENOL
     Indication: Pulmonary arterial hypertension
     Route: 042
  2. SILDENAFIL [Concomitant]
     Active Substance: SILDENAFIL
  3. OPSUMIT [Concomitant]
     Active Substance: MACITENTAN

REACTIONS (3)
  - Cardiac failure [Unknown]
  - Ascites [Unknown]
  - Hyperthyroidism [Unknown]
